FAERS Safety Report 17493138 (Version 1)
Quarter: 2020Q1

REPORT INFORMATION
  Report Type: Spontaneous
  Country: US (occurrence: US)
  Receive Date: 20200304
  Receipt Date: 20200304
  Transmission Date: 20200409
  Serious: No
  Sender: FDA-Public Use
  Company Number: US-GLENMARK PHARMACEUTICALS-2019GMK044132

PATIENT

DRUGS (9)
  1. GABAPENTIN TABLETS USP, 800 MG [Suspect]
     Active Substance: GABAPENTIN
     Indication: NEUROPATHY PERIPHERAL
     Dosage: 4 DF (1 TABLET IN THE MORNING, 1 TABLET IN THE MID-DAY AND 2 TABLETS AT NIGHT BEFORE BEDTIME), QD
     Route: 048
  2. SERTRALINE [Concomitant]
     Active Substance: SERTRALINE HYDROCHLORIDE
     Indication: DEPRESSION
     Dosage: 2 DF, QD; START DATE: LONG TIME (UNSPECIFIED)
     Route: 048
  3. PRAVASTATIN. [Concomitant]
     Active Substance: PRAVASTATIN
     Indication: BLOOD CHOLESTEROL ABNORMAL
     Dosage: 1 DF, QD; START DATE: 3 YEARS AGO
     Route: 048
  4. LEVOTHYROXINE. [Concomitant]
     Active Substance: LEVOTHYROXINE
     Indication: THYROID DISORDER
     Dosage: 88 MG ((LOWERED RECENTLY), QD; START DATE: LONG TIME (UNSPECIFIED)
     Route: 048
  5. DORZOLAMIDE [Concomitant]
     Active Substance: DORZOLAMIDE
     Indication: GLAUCOMA
     Dosage: UNK, BID
     Route: 061
  6. GABAPENTIN TABLETS USP, 800 MG [Suspect]
     Active Substance: GABAPENTIN
     Dosage: UNK, PRN (AS NEEDED)
     Route: 048
  7. BRIMONIDINE [Concomitant]
     Active Substance: BRIMONIDINE TARTRATE
     Indication: GLAUCOMA
     Dosage: 1 GTT, TID (ONE DROP IN LEFT EYE, TOTAL 3 TIMES A DAY); START DATE: MANY YEARS AGO (UNSPECIFIED)
     Route: 061
  8. LATANOPROST. [Concomitant]
     Active Substance: LATANOPROST
     Indication: GLAUCOMA
     Dosage: UNK, OD (ONCE A DAY IN BOTH EYES)
     Route: 061
  9. PILOCARPINE. [Concomitant]
     Active Substance: PILOCARPINE
     Indication: GLAUCOMA
     Dosage: UNK, QID (4 TIMES A DAY IN LEFT EYE)
     Route: 061

REACTIONS (2)
  - Product use in unapproved indication [Unknown]
  - Intentional product misuse [Unknown]
